FAERS Safety Report 6535868-6 (Version None)
Quarter: 2010Q1

REPORT INFORMATION
  Report Type: 
  Country: None (occurrence: None)
  Receive Date: 20100106
  Receipt Date: 20091228
  Transmission Date: 20100710
  Serious: Yes (Death, Hospitalization, Other)
  Sender: FDA-Public Use
  Company Number: 2009029420

PATIENT
  Age: 61 Year
  Sex: Male
  Weight: 84 kg

DRUGS (19)
  1. TRISENOX [Suspect]
     Indication: ACUTE MYELOID LEUKAEMIA
     Dosage: SEE IMAGE
     Route: 041
     Dates: start: 20091109, end: 20091113
  2. TRISENOX [Suspect]
     Indication: ACUTE MYELOID LEUKAEMIA
     Dosage: SEE IMAGE
     Route: 041
     Dates: start: 20091119, end: 20091123
  3. TRISENOX [Suspect]
     Indication: ACUTE MYELOID LEUKAEMIA
     Dosage: SEE IMAGE
     Route: 041
     Dates: start: 20091123, end: 20091127
  4. TRISENOX [Suspect]
     Indication: ACUTE MYELOID LEUKAEMIA
     Dosage: SEE IMAGE
     Route: 041
     Dates: start: 20091005
  5. DECITABINE (DECITABINE) [Suspect]
     Indication: ACUTE MYELOID LEUKAEMIA
     Dosage: 920 MG/M2, DAYS 1-5 QW), INTRAVENOUS
     Route: 042
     Dates: start: 20091109, end: 20091113
  6. ASCORBIC ACID [Suspect]
     Indication: ACUTE MYELOID LEUKAEMIA
     Dosage: SEE IMAGE
     Route: 042
     Dates: start: 20091109
  7. ASCORBIC ACID [Suspect]
     Indication: ACUTE MYELOID LEUKAEMIA
     Dosage: SEE IMAGE
     Route: 042
     Dates: start: 20091119
  8. ASCORBIC ACID [Suspect]
     Indication: ACUTE MYELOID LEUKAEMIA
     Dosage: SEE IMAGE
     Route: 042
     Dates: start: 20091123
  9. COMPAZINE [Concomitant]
  10. DILAUDID [Concomitant]
  11. MS CONTIN [Concomitant]
  12. NEXIUM [Concomitant]
  13. FLOMAX (MORNIFLUMATE) [Concomitant]
  14. FOLIC ACID [Concomitant]
  15. LORATADINE (LORATIDINE) [Concomitant]
  16. VALTREX [Concomitant]
  17. ZOLOFT [Concomitant]
  18. POTASSIUM CHLORIDE [Concomitant]
  19. MEPRON (METAMIZOLE SODIUM) [Concomitant]

REACTIONS (31)
  - ADRENAL INSUFFICIENCY [None]
  - BACK PAIN [None]
  - BACTERIAL INFECTION [None]
  - CARDIAC ARREST [None]
  - CELLULITIS [None]
  - CONFUSIONAL STATE [None]
  - DELIRIUM [None]
  - DRUG TOLERANCE INCREASED [None]
  - ECCHYMOSIS [None]
  - ENCEPHALOPATHY [None]
  - ENTEROCOCCAL INFECTION [None]
  - ERYTHEMA [None]
  - FEBRILE NEUTROPENIA [None]
  - GENERAL PHYSICAL HEALTH DETERIORATION [None]
  - HYPOCALCAEMIA [None]
  - HYPOTENSION [None]
  - INFECTION [None]
  - LEUKAEMIA CUTIS [None]
  - MALIGNANT NEOPLASM PROGRESSION [None]
  - MULTI-ORGAN DISORDER [None]
  - NEUROLOGICAL DECOMPENSATION [None]
  - NO THERAPEUTIC RESPONSE [None]
  - OEDEMA PERIPHERAL [None]
  - PANCYTOPENIA [None]
  - PAROTITIS [None]
  - PNEUMONIA [None]
  - PSEUDOMONAS INFECTION [None]
  - RENAL FAILURE ACUTE [None]
  - RESPIRATORY ARREST [None]
  - RESPIRATORY DISTRESS [None]
  - SEPSIS [None]
